FAERS Safety Report 15430465 (Version 1)
Quarter: 2018Q3

REPORT INFORMATION
  Report Type: Spontaneous
  Country: PL (occurrence: PL)
  Receive Date: 20180926
  Receipt Date: 20180926
  Transmission Date: 20181010
  Serious: Yes (Other)
  Sender: FDA-Public Use
  Company Number: PL-ROCHE-2186706

PATIENT
  Age: 79 Year
  Sex: Male

DRUGS (18)
  1. 5?FU [Suspect]
     Active Substance: FLUOROURACIL
     Indication: COLORECTAL CANCER
     Dosage: ON DAYS 1?2
     Route: 040
     Dates: start: 20180201
  2. DEXAVEN [Concomitant]
     Active Substance: DEXAMETHASONE
  3. ATROPINE. [Concomitant]
     Active Substance: ATROPINE
     Route: 065
  4. ONDANSETRON [Concomitant]
     Active Substance: ONDANSETRON
     Route: 065
  5. PRESTARIUM [Concomitant]
     Active Substance: PERINDOPRIL
  6. 5?FU [Suspect]
     Active Substance: FLUOROURACIL
     Route: 042
     Dates: start: 20180201
  7. LEVOFOLIC [Suspect]
     Active Substance: LEUCOVORIN
     Indication: COLORECTAL CANCER
     Dosage: 44 HOURS
     Route: 042
     Dates: start: 20180201
  8. TORECAN [Suspect]
     Active Substance: THIETHYLPERAZINE MALATE
     Indication: PRODUCT USED FOR UNKNOWN INDICATION
     Route: 065
  9. TORECAN [Suspect]
     Active Substance: THIETHYLPERAZINE MALATE
     Route: 065
  10. AVASTIN [Suspect]
     Active Substance: BEVACIZUMAB
     Indication: COLORECTAL CANCER
     Dosage: ON DAY 1
     Route: 042
     Dates: start: 20180201
  11. 5?FU [Suspect]
     Active Substance: FLUOROURACIL
     Route: 042
     Dates: start: 20180827
  12. CAMPTO [Suspect]
     Active Substance: IRINOTECAN
     Indication: COLORECTAL CANCER
     Route: 042
     Dates: start: 20180201
  13. CAMPTO [Suspect]
     Active Substance: IRINOTECAN
     Dosage: ON DAY 1
     Route: 042
     Dates: start: 20180827
  14. AVASTIN [Suspect]
     Active Substance: BEVACIZUMAB
     Dosage: ON DAY 1
     Route: 042
     Dates: start: 20180827
  15. 5?FU [Suspect]
     Active Substance: FLUOROURACIL
     Dosage: ON DAYS 1?2
     Route: 040
     Dates: start: 20180827
  16. METOPROLOL TARTRATE. [Concomitant]
     Active Substance: METOPROLOL TARTRATE
  17. METOCLOPRAMIDE. [Concomitant]
     Active Substance: METOCLOPRAMIDE
  18. LEVOFOLIC [Suspect]
     Active Substance: LEUCOVORIN
     Dosage: 44 HOURS
     Route: 042
     Dates: start: 20180827

REACTIONS (8)
  - Nausea [Unknown]
  - Diarrhoea [Unknown]
  - Intervertebral disc degeneration [Unknown]
  - Neutropenia [Unknown]
  - Palmar-plantar erythrodysaesthesia syndrome [Unknown]
  - Soft tissue disorder [Unknown]
  - Anaemia [Unknown]
  - Vomiting [Unknown]
